FAERS Safety Report 15644329 (Version 6)
Quarter: 2021Q2

REPORT INFORMATION
  Report Type: Report from Study
  Country: US (occurrence: US)
  Receive Date: 20181121
  Receipt Date: 20210428
  Transmission Date: 20210716
  Serious: Yes (Hospitalization, Other)
  Sender: FDA-Public Use
  Company Number: US-SA-2016SA176343

PATIENT
  Age: 27 Year
  Sex: Female

DRUGS (6)
  1. LARONIDASE [Suspect]
     Active Substance: LARONIDASE
     Dosage: 49.30 MG, QW
     Route: 041
     Dates: start: 20050214
  2. LARONIDASE [Suspect]
     Active Substance: LARONIDASE
     Dosage: 60.9 MG, 1X
     Route: 042
     Dates: start: 202103, end: 202103
  3. LARONIDASE [Suspect]
     Active Substance: LARONIDASE
     Dosage: 49.3 MG, QW
     Route: 042
     Dates: start: 20160210
  4. LARONIDASE [Suspect]
     Active Substance: LARONIDASE
     Indication: MUCOPOLYSACCHARIDOSIS I
     Dosage: 49.3 MG, QW
     Route: 041
     Dates: start: 2002
  5. LARONIDASE [Suspect]
     Active Substance: LARONIDASE
     Dosage: 49.3 MG, QW
     Route: 041
     Dates: start: 201510
  6. LARONIDASE [Suspect]
     Active Substance: LARONIDASE
     Dosage: 49.3 MG, QW
     Route: 042
     Dates: start: 2021

REACTIONS (10)
  - Nasal congestion [Unknown]
  - Fibromyalgia [Unknown]
  - Incorrect dose administered [Unknown]
  - Urinary incontinence [Unknown]
  - Cerebrovascular accident [Unknown]
  - Neuralgia [Unknown]
  - Sinusitis [Unknown]
  - Malaise [Unknown]
  - Corneal disorder [Recovered/Resolved]
  - Kidney infection [Unknown]

NARRATIVE: CASE EVENT DATE: 20160908
